FAERS Safety Report 4827100-6 (Version None)
Quarter: 2005Q4

REPORT INFORMATION
  Report Type: 
  Country: None (occurrence: None)
  Receive Date: 20051114
  Receipt Date: 20050905
  Transmission Date: 20060501
  Serious: Yes (Life-Threatening)
  Sender: FDA-Public Use
  Company Number: JP-JPN-A20052107

PATIENT
  Age: 52 Year
  Sex: Female
  Weight: 45 kg

DRUGS (4)
  1. PAXIL [Suspect]
     Indication: DEPRESSION
     Dosage: 10MG PER DAY
     Route: 048
     Dates: start: 20050808, end: 20050810
  2. DEPAS [Concomitant]
     Indication: DEPRESSION
     Dosage: .5MG PER DAY
     Route: 048
     Dates: start: 20050808, end: 20050810
  3. CONJUGATED ESTROGEN [Concomitant]
     Dosage: .625MG PER DAY
     Route: 048
     Dates: start: 20050606
  4. MEDROXYPROGESTERONE ACETATE [Concomitant]
     Dosage: 2.5MG PER DAY
     Route: 065
     Dates: start: 20050606

REACTIONS (5)
  - AGITATION [None]
  - ANXIETY [None]
  - INTRA-ABDOMINAL HAEMORRHAGE [None]
  - SHOCK [None]
  - SUICIDE ATTEMPT [None]
